FAERS Safety Report 12697921 (Version 1)
Quarter: 2016Q3

REPORT INFORMATION
  Report Type: Spontaneous
  Country: FR (occurrence: FR)
  Receive Date: 20160830
  Receipt Date: 20160830
  Transmission Date: 20161109
  Serious: Yes (Hospitalization)
  Sender: FDA-Public Use
  Company Number: FR-PFIZER INC-2016397085

PATIENT
  Age: 49 Year
  Sex: Male

DRUGS (8)
  1. SUTENT [Suspect]
     Active Substance: SUNITINIB MALATE
     Indication: RENAL CANCER STAGE IV
     Dosage: 37.5 MG, 1X/DAY
     Route: 048
     Dates: start: 20160722, end: 20160730
  2. ZOPHREN /00955301/ [Concomitant]
     Active Substance: ONDANSETRON
  3. PRIMPERAN [Concomitant]
     Active Substance: METOCLOPRAMIDE HYDROCHLORIDE
  4. INNOHEP [Concomitant]
     Active Substance: TINZAPARIN SODIUM
  5. VERSATIS [Concomitant]
     Active Substance: LIDOCAINE
  6. SPASFON /00765801/ [Concomitant]
     Active Substance: PHLOROGLUCINOL\1,3,5-TRIMETHOXYBENZENE
  7. MAGNE B6 /00869101/ [Concomitant]
  8. OXYNORM [Concomitant]
     Active Substance: OXYCODONE HYDROCHLORIDE

REACTIONS (2)
  - Hepatocellular injury [Recovering/Resolving]
  - Prothrombin time ratio decreased [Recovered/Resolved]

NARRATIVE: CASE EVENT DATE: 20160730
